FAERS Safety Report 6871999-9 (Version None)
Quarter: 2010Q2

REPORT INFORMATION
  Report Type: 
  Country: None (occurrence: None)
  Receive Date: 20100610
  Receipt Date: 20100402
  Transmission Date: 20101027
  Serious: Yes (Other)
  Sender: FDA-Public Use
  Company Number: 2010SP019604

PATIENT
  Age: 40 Year
  Sex: Female

DRUGS (4)
  1. SAPHRIS [Suspect]
     Indication: DRUG USE FOR UNKNOWN INDICATION
     Dosage: 10 MG; HS;
  2. LITHIUM [Concomitant]
  3. LAMICTAL [Concomitant]
  4. PRISTIQ [Concomitant]

REACTIONS (6)
  - DYSGEUSIA [None]
  - DYSPHAGIA [None]
  - DYSTONIA [None]
  - EXTRAPYRAMIDAL DISORDER [None]
  - INAPPROPRIATE SCHEDULE OF DRUG ADMINISTRATION [None]
  - LIMB DISCOMFORT [None]
